FAERS Safety Report 11225195 (Version 1)
Quarter: 2015Q2

REPORT INFORMATION
  Report Type: Spontaneous
  Country: CH (occurrence: CH)
  Receive Date: 20150629
  Receipt Date: 20150629
  Transmission Date: 20150821
  Serious: Yes (Other)
  Sender: FDA-Public Use
  Company Number: PHHY2015CH073252

PATIENT
  Age: 30 Year
  Sex: Female

DRUGS (4)
  1. BLEOMYCIN [Suspect]
     Active Substance: BLEOMYCIN SULFATE
     Indication: HODGKIN^S DISEASE LYMPHOCYTE DEPLETION STAGE II SITE UNSPECIFIED
     Dosage: 20 MG, BIW
     Route: 042
     Dates: start: 20150217, end: 20150331
  2. DACIN//DACARBAZINE [Suspect]
     Active Substance: DACARBAZINE
     Indication: HODGKIN^S DISEASE LYMPHOCYTE DEPLETION STAGE II SITE UNSPECIFIED
     Dosage: 75 MG, UNK
     Route: 042
     Dates: start: 20150217, end: 20150331
  3. DOXORUBICIN SANDOZ [Suspect]
     Active Substance: DOXORUBICIN
     Indication: HODGKIN^S DISEASE LYMPHOCYTE DEPLETION STAGE II SITE UNSPECIFIED
     Dosage: 50 MG, BIW
     Route: 042
     Dates: start: 20150217, end: 20150331
  4. VELBE [Suspect]
     Active Substance: VINBLASTINE SULFATE
     Indication: HODGKIN^S DISEASE LYMPHOCYTE DEPLETION STAGE II SITE UNSPECIFIED
     Dosage: 12 MG, BIW
     Route: 042
     Dates: start: 20150217, end: 20150331

REACTIONS (2)
  - Premature baby [Recovered/Resolved]
  - Exposure during pregnancy [Recovered/Resolved]

NARRATIVE: CASE EVENT DATE: 20150217
